FAERS Safety Report 7553807-6 (Version None)
Quarter: 2011Q2

REPORT INFORMATION
  Report Type: 
  Country: None (occurrence: None)
  Receive Date: 20110617
  Receipt Date: 20110607
  Transmission Date: 20111010
  Serious: Yes (Life-Threatening)
  Sender: FDA-Public Use
  Company Number: AU-JNJFOC-20110604865

PATIENT
  Age: 82 Year
  Sex: Female
  Weight: 75 kg

DRUGS (8)
  1. AMITRIPTYLINE HYDROCHLORIDE [Concomitant]
  2. CLOPIDOGREL [Concomitant]
  3. SIMVASTATIN [Concomitant]
  4. GABAPENTIN [Suspect]
     Indication: PRODUCT USED FOR UNKNOWN INDICATION
     Dates: end: 20110509
  5. TRAMADOL HCL [Suspect]
     Indication: PAIN
     Route: 065
     Dates: start: 20110507, end: 20110509
  6. RISEDRONATE SODIUM [Concomitant]
  7. ACETAMINOPHEN [Concomitant]
  8. INDAPAMIDE HEMIHYDRATE [Concomitant]

REACTIONS (3)
  - COMA SCALE ABNORMAL [None]
  - RENAL FAILURE ACUTE [None]
  - PNEUMONIA ASPIRATION [None]
